FAERS Safety Report 18097472 (Version 1)
Quarter: 2020Q3

REPORT INFORMATION
  Report Type: Spontaneous
  Country: US (occurrence: US)
  Receive Date: 20200731
  Receipt Date: 20200731
  Transmission Date: 20201103
  Serious: Yes (Life-Threatening)
  Sender: FDA-Public Use
  Company Number: None

PATIENT
  Age: 59 Year
  Sex: Female
  Weight: 67.5 kg

DRUGS (8)
  1. ZYRTEC [Concomitant]
     Active Substance: CETIRIZINE HYDROCHLORIDE
  2. AZITHROMYCIN TABLET USP, 250 MG [Suspect]
     Active Substance: AZITHROMYCIN
     Indication: SINUSITIS
     Route: 048
     Dates: start: 20200728, end: 20200729
  3. BACLOFEN. [Concomitant]
     Active Substance: BACLOFEN
  4. ROSUVASTATIN. [Concomitant]
     Active Substance: ROSUVASTATIN
  5. MIDODRINE HCL [Concomitant]
     Active Substance: MIDODRINE HYDROCHLORIDE
  6. LEVOTHYROXINE. [Concomitant]
     Active Substance: LEVOTHYROXINE
  7. MULTIVITAMIN [Concomitant]
     Active Substance: VITAMINS
  8. TOPIRAMATE. [Concomitant]
     Active Substance: TOPIRAMATE

REACTIONS (8)
  - Heart rate increased [None]
  - Blood potassium decreased [None]
  - Rash [None]
  - Hyperhidrosis [None]
  - Blood pressure increased [None]
  - Drug hypersensitivity [None]
  - Chest discomfort [None]
  - Feeling hot [None]

NARRATIVE: CASE EVENT DATE: 20200730
